FAERS Safety Report 4426726-1 (Version None)
Quarter: 2004Q3

REPORT INFORMATION
  Report Type: 
  Country: None (occurrence: None)
  Receive Date: 20040816
  Receipt Date: 20040521
  Transmission Date: 20050211
  Serious: Yes (Hospitalization)
  Sender: FDA-Public Use
  Company Number: AU-ROCHE-368469

PATIENT
  Age: 62 Year
  Sex: Female

DRUGS (34)
  1. MYCOPHENOLATE MOFETIL [Suspect]
     Route: 065
     Dates: start: 20040512, end: 20040522
  2. MYCOPHENOLATE MOFETIL [Suspect]
     Route: 065
     Dates: start: 20040523, end: 20040616
  3. MYCOPHENOLATE MOFETIL [Suspect]
     Route: 065
     Dates: start: 20040617, end: 20040709
  4. MYCOPHENOLATE MOFETIL [Suspect]
     Route: 065
     Dates: start: 20040710
  5. CYCLOSPORINE [Suspect]
     Route: 065
     Dates: start: 20040512, end: 20040512
  6. CYCLOSPORINE [Suspect]
     Route: 065
     Dates: start: 20040513, end: 20040513
  7. CYCLOSPORINE [Suspect]
     Dosage: 275MG IN THE MORNING AND 350MG IN THE EVENING
     Route: 065
     Dates: start: 20040514, end: 20040514
  8. CYCLOSPORINE [Suspect]
     Route: 065
     Dates: start: 20040515, end: 20040520
  9. CYCLOSPORINE [Suspect]
     Dosage: 350 MG QAM, 325 MG QPM.
     Route: 065
     Dates: start: 20040521, end: 20040522
  10. CYCLOSPORINE [Suspect]
     Dosage: 350 MG QAM, 300 MG QPM
     Route: 065
     Dates: start: 20040523, end: 20040523
  11. CYCLOSPORINE [Suspect]
     Route: 065
     Dates: start: 20040524, end: 20040524
  12. CYCLOSPORINE [Suspect]
     Dosage: 200 MG QAM, 225 MG QPM
     Route: 065
     Dates: start: 20040525, end: 20040525
  13. CYCLOSPORINE [Suspect]
     Route: 065
     Dates: start: 20040526, end: 20040527
  14. CYCLOSPORINE [Suspect]
     Route: 065
     Dates: start: 20040528, end: 20040604
  15. CYCLOSPORINE [Suspect]
     Dosage: 125 MG QAM, 150 MG QPM
     Route: 065
     Dates: start: 20040605, end: 20040605
  16. CYCLOSPORINE [Suspect]
     Route: 065
     Dates: start: 20040606, end: 20040612
  17. CYCLOSPORINE [Suspect]
     Dosage: 150 MG QAM, 125 MG QPM
     Route: 065
     Dates: start: 20040613, end: 20040617
  18. CYCLOSPORINE [Suspect]
     Dosage: 125 MG QAM, 100 MG QPM
     Route: 065
     Dates: start: 20040618, end: 20040701
  19. CYCLOSPORINE [Suspect]
     Route: 065
     Dates: start: 20040702, end: 20040708
  20. CYCLOSPORINE [Suspect]
     Dosage: 125 MG QAM, 100 MG QPM
     Route: 065
     Dates: start: 20040709, end: 20040716
  21. CYCLOSPORINE [Suspect]
     Route: 065
     Dates: start: 20040717, end: 20040721
  22. CYCLOSPORINE [Suspect]
     Dosage: 125 MG QAM, 100 MG QPM
     Route: 065
     Dates: start: 20040722
  23. METHYLPREDNISOLONE [Suspect]
     Route: 065
     Dates: start: 20040512, end: 20040513
  24. PREDNISOLONE [Suspect]
     Route: 065
     Dates: start: 20040514, end: 20040622
  25. PREDNISOLONE [Suspect]
     Route: 065
     Dates: start: 20040623, end: 20040630
  26. PREDNISOLONE [Suspect]
     Route: 065
     Dates: start: 20040701, end: 20040706
  27. PREDNISOLONE [Suspect]
     Route: 065
     Dates: start: 20040707, end: 20040714
  28. PREDNISOLONE [Suspect]
     Route: 065
     Dates: start: 20040715, end: 20040725
  29. PREDNISOLONE [Suspect]
     Route: 065
     Dates: start: 20040726, end: 20040729
  30. PREDNISOLONE [Suspect]
     Route: 065
     Dates: start: 20040730
  31. COTRIM [Concomitant]
     Dates: start: 20040513
  32. TIMENTIN [Concomitant]
     Dates: start: 20040512, end: 20040512
  33. ACTRAPID [Concomitant]
     Dates: start: 20040513, end: 20040515
  34. AMOXICILLIN [Concomitant]
     Dates: start: 20040625, end: 20040709

REACTIONS (10)
  - CYTOMEGALOVIRUS INFECTION [None]
  - DIARRHOEA [None]
  - ENTEROCOCCAL INFECTION [None]
  - HAEMATOMA [None]
  - LYMPHOCELE [None]
  - ORAL PAIN [None]
  - TONGUE ULCERATION [None]
  - URINARY TRACT INFECTION [None]
  - WOUND DECOMPOSITION [None]
  - WOUND SECRETION [None]
